FAERS Safety Report 6565379-3 (Version None)
Quarter: 2010Q1

REPORT INFORMATION
  Report Type: 
  Country: None (occurrence: None)
  Receive Date: 20100201
  Receipt Date: 20100118
  Transmission Date: 20100710
  Serious: Yes (Hospitalization)
  Sender: FDA-Public Use
  Company Number: US-MYLANLABS-2010S1000705

PATIENT
  Age: 85 Year
  Sex: Male

DRUGS (2)
  1. DULOXETINE [Interacting]
     Dosage: 20MG DAILY
  2. FLUOXETINE [Suspect]
     Dosage: TITRATED UP TO 30MG DAILY

REACTIONS (2)
  - DRUG INTERACTION [None]
  - SEROTONIN SYNDROME [None]
